FAERS Safety Report 20840067 (Version 2)
Quarter: 2022Q2

REPORT INFORMATION
  Report Type: Spontaneous
  Country: US (occurrence: None)
  Receive Date: 20220517
  Receipt Date: 20220520
  Transmission Date: 20220721
  Serious: No
  Sender: FDA-Public Use
  Company Number: 2022A183534

PATIENT
  Sex: Male
  Weight: 94.8 kg

DRUGS (6)
  1. SEROQUEL [Suspect]
     Active Substance: QUETIAPINE FUMARATE
     Indication: Insomnia
     Dosage: 50-150MG AT BEDTIME
     Route: 048
  2. SEROQUEL XR [Suspect]
     Active Substance: QUETIAPINE FUMARATE
     Indication: Insomnia
     Route: 048
  3. LEXAPRO [Concomitant]
     Active Substance: ESCITALOPRAM OXALATE
  4. CLONAZEPAM [Concomitant]
     Active Substance: CLONAZEPAM
  5. METHYLPHENIDATE [Concomitant]
     Active Substance: METHYLPHENIDATE
  6. METHOCARBAMOL [Concomitant]
     Active Substance: METHOCARBAMOL

REACTIONS (9)
  - Off label use [Unknown]
  - Restless legs syndrome [Unknown]
  - Hangover [Unknown]
  - Somatic symptom disorder [Recovered/Resolved]
  - Dyskinesia [Unknown]
  - Fatigue [Unknown]
  - Rapid eye movements sleep abnormal [Unknown]
  - Poor quality sleep [Unknown]
  - Product use issue [Unknown]
